FAERS Safety Report 17047861 (Version 1)
Quarter: 2019Q4

REPORT INFORMATION
  Report Type: Report from Study
  Country: US (occurrence: US)
  Receive Date: 20191119
  Receipt Date: 20191119
  Transmission Date: 20200122
  Serious: Yes (Hospitalization, Other)
  Sender: FDA-Public Use
  Company Number: US-RETROPHIN, INC.-2019RTN00117

PATIENT
  Age: 1 Year
  Sex: Female
  Weight: 9 kg

DRUGS (3)
  1. CHOLIC ACID [Suspect]
     Active Substance: CHOLIC ACID
     Indication: CEREBROHEPATORENAL SYNDROME
     Dosage: 50 MG, 1X/DAY
     Route: 048
     Dates: start: 20181201
  2. CHOLIC ACID [Suspect]
     Active Substance: CHOLIC ACID
     Dosage: 100 MG, 1X/DAY
  3. LEVSIN [Concomitant]
     Active Substance: HYOSCYAMINE SULFATE
     Dosage: UNK
     Dates: start: 20190619

REACTIONS (9)
  - Epilepsy [Unknown]
  - Conjunctivitis viral [Unknown]
  - Sleep apnoea syndrome [Not Recovered/Not Resolved]
  - Enterovirus infection [Unknown]
  - Bronchiolitis [Recovered/Resolved]
  - Rhinovirus infection [Recovered/Resolved]
  - Product dose omission [Recovered/Resolved]
  - Disease progression [Unknown]
  - Acute respiratory failure [Recovered/Resolved]

NARRATIVE: CASE EVENT DATE: 201910
